FAERS Safety Report 5922148-2 (Version None)
Quarter: 2008Q3

REPORT INFORMATION
  Report Type: 
  Country: None (occurrence: None)
  Receive Date: 20080909
  Receipt Date: 20080611
  Transmission Date: 20090109
  Serious: Yes (Death)
  Sender: FDA-Public Use
  Company Number: 163-20785-08060707

PATIENT
  Age: 62 Year
  Sex: Female

DRUGS (2)
  1. THALOMID [Suspect]
     Indication: MULTIPLE MYELOMA
     Dosage: 350 MG, 7 IN 1 D, ORAL ; 400MG, 200MG, 250MG, 300MG, DAILY, ORAL
     Route: 048
     Dates: start: 20021114, end: 20050501
  2. THALOMID [Suspect]
     Indication: MULTIPLE MYELOMA
     Dosage: 350 MG, 7 IN 1 D, ORAL ; 400MG, 200MG, 250MG, 300MG, DAILY, ORAL
     Route: 048
     Dates: start: 20050517, end: 20051101

REACTIONS (1)
  - DEATH [None]
